FAERS Safety Report 8266325-7 (Version None)
Quarter: 2012Q1

REPORT INFORMATION
  Report Type: 
  Country: None (occurrence: None)
  Receive Date: 20120327
  Receipt Date: 20091106
  Transmission Date: 20120608
  Serious: Yes (Other)
  Sender: FDA-Public Use
  Company Number: PHEH2009US11349

PATIENT
  Age: 68 Year
  Sex: Male

DRUGS (7)
  1. NIASPAN [Concomitant]
  2. PLAVIX [Concomitant]
  3. BISOPROLOL FUMARATE [Concomitant]
  4. ASPIRIN [Concomitant]
  5. GLEEVEC [Suspect]
     Indication: CHRONIC MYELOID LEUKAEMIA
     Dosage: 400 MG, DAILY, ORAL    200 MG, DAILY, ORAL    400 MG, DAILY, ORAL
     Route: 048
  6. GLEEVEC [Suspect]
     Indication: CHRONIC MYELOID LEUKAEMIA
     Dosage: 400 MG, DAILY, ORAL    200 MG, DAILY, ORAL    400 MG, DAILY, ORAL
     Route: 048
     Dates: start: 20090622, end: 20090810
  7. LIPITOR [Concomitant]

REACTIONS (13)
  - MONOCYTE PERCENTAGE DECREASED [None]
  - PROTEIN TOTAL DECREASED [None]
  - MONOCYTE COUNT INCREASED [None]
  - GLOMERULAR FILTRATION RATE DECREASED [None]
  - BLOOD CALCIUM DECREASED [None]
  - WHITE BLOOD CELL COUNT DECREASED [None]
  - BLOOD UREA INCREASED [None]
  - BLOOD GLUCOSE INCREASED [None]
  - BLOOD CREATININE INCREASED [None]
  - PLATELET COUNT DECREASED [None]
  - BAND NEUTROPHIL COUNT INCREASED [None]
  - METAMYELOCYTE COUNT INCREASED [None]
  - BLOOD LACTATE DEHYDROGENASE INCREASED [None]
